FAERS Safety Report 23320553 (Version 2)
Quarter: 2024Q1

REPORT INFORMATION
  Report Type: Spontaneous
  Country: PT (occurrence: PT)
  Receive Date: 20231220
  Receipt Date: 20240313
  Transmission Date: 20240410
  Serious: Yes (Other)
  Sender: FDA-Public Use
  Company Number: PT-GILEAD-2023-0645856

PATIENT
  Age: 38 Year
  Sex: Female
  Weight: 97 kg

DRUGS (7)
  1. BIKTARVY [Suspect]
     Active Substance: BICTEGRAVIR SODIUM\EMTRICITABINE\TENOFOVIR ALAFENAMIDE FUMARATE
     Indication: HIV infection
     Dosage: BIKTARVY 50 MG/200 MG/25 MG 1 PILL/DAY
     Route: 065
     Dates: start: 20211215
  2. BISOPROLOL [Concomitant]
     Active Substance: BISOPROLOL\BISOPROLOL FUMARATE
     Indication: Arrhythmia
     Dosage: 2.5 MG
  3. METFORMIN [Concomitant]
     Active Substance: METFORMIN HYDROCHLORIDE
     Indication: Gestational diabetes
     Dosage: 1 DOSAGE FORM Q12H
  4. FOLIC ACID [Concomitant]
     Active Substance: FOLIC ACID
     Indication: Pregnancy
  5. BUPIVACAINE [Concomitant]
     Active Substance: BUPIVACAINE
     Indication: Labour pain
     Dosage: UNK
     Dates: start: 20230928, end: 20230929
  6. SUFENTANIL [Concomitant]
     Active Substance: SUFENTANIL
  7. MORPHINE [Concomitant]
     Active Substance: MORPHINE

REACTIONS (4)
  - Gestational diabetes [Recovered/Resolved]
  - Maternal exposure during pregnancy [Recovered/Resolved]
  - Obesity [Unknown]
  - Weight increased [Unknown]
